FAERS Safety Report 18280352 (Version 3)
Quarter: 2021Q4

REPORT INFORMATION
  Report Type: Spontaneous
  Country: US (occurrence: US)
  Receive Date: 20200917
  Receipt Date: 20211125
  Transmission Date: 20220303
  Serious: No
  Sender: FDA-Public Use
  Company Number: US-PFIZER INC-2018207011

PATIENT
  Age: 64 Year
  Sex: Female

DRUGS (1)
  1. LYRICA [Suspect]
     Active Substance: PREGABALIN
     Indication: Fibromyalgia
     Dosage: 200 MG, 3X/DAY
     Route: 048

REACTIONS (4)
  - Feeling abnormal [Unknown]
  - Confusional state [Unknown]
  - Nasopharyngitis [Unknown]
  - Off label use [Unknown]
